FAERS Safety Report 5211186-3 (Version None)
Quarter: 2006Q4

REPORT INFORMATION
  Report Type: 
  Country: None (occurrence: None)
  Receive Date: 20061130
  Receipt Date: 20060803
  Transmission Date: 20070319
  Serious: Yes (Other)
  Sender: FDA-Public Use
  Company Number: WAES 0608USA01095

PATIENT
  Age: 76 Year
  Sex: Male
  Weight: 68.9467 kg

DRUGS (4)
  1. TAB FOSAMAX 70 MG [Suspect]
     Indication: OSTEOPOROSIS
     Dosage: 70 MG WKY PO
     Route: 048
     Dates: start: 20031124, end: 20060101
  2. LUPRON [Concomitant]
  3. PRAVACHOL [Concomitant]
  4. ALPRAZOLAM [Concomitant]

REACTIONS (1)
  - OSTEOLYSIS [None]
